FAERS Safety Report 22094587 (Version 1)
Quarter: 2023Q1

REPORT INFORMATION
  Report Type: Spontaneous
  Country: GB (occurrence: GB)
  Receive Date: 20230314
  Receipt Date: 20230314
  Transmission Date: 20230418
  Serious: Yes (Other)
  Sender: FDA-Public Use
  Company Number: GB-MHRA-MED-202303020836525310-NKQBJ

PATIENT
  Age: 24 Year
  Sex: Male

DRUGS (1)
  1. OFLOXACIN [Suspect]
     Active Substance: OFLOXACIN
     Indication: Bacterial infection
     Dosage: 200 MILLIGRAM DAILY;
     Route: 065
     Dates: start: 20200615, end: 20200617

REACTIONS (3)
  - Muscle spasms [Recovered/Resolved]
  - Anxiety [Recovered/Resolved]
  - Tendon pain [Recovered/Resolved]

NARRATIVE: CASE EVENT DATE: 20200615
